FAERS Safety Report 14240368 (Version 1)
Quarter: 2017Q4

REPORT INFORMATION
  Report Type: Spontaneous
  Country: US (occurrence: US)
  Receive Date: 20171130
  Receipt Date: 20171130
  Transmission Date: 20180321
  Serious: Yes (Hospitalization, Other)
  Sender: FDA-Public Use
  Company Number: US-PFIZER INC-2017510482

PATIENT
  Age: 69 Year
  Sex: Male
  Weight: 117.3 kg

DRUGS (1)
  1. ATROPINE SULFATE/DIPHENOXYLATE HYDROCHLORIDE [Suspect]
     Active Substance: ATROPINE SULFATE\DIPHENOXYLATE HYDROCHLORIDE
     Indication: IRRITABLE BOWEL SYNDROME
     Dosage: [ATROPINE SULFATE 0.025MG]/[DIPHENOXYLATE HCL 2.5MG]
     Dates: end: 20171125

REACTIONS (8)
  - Vision blurred [Unknown]
  - Tendon rupture [Unknown]
  - Product use issue [None]
  - Fall [Unknown]
  - Haematoma [Unknown]
  - Atrial fibrillation [Unknown]
  - Disturbance in attention [Unknown]
  - Blood pressure fluctuation [Unknown]

NARRATIVE: CASE EVENT DATE: 2017
